FAERS Safety Report 8843643 (Version 2)
Quarter: 2014Q2

REPORT INFORMATION
  Report Type: Spontaneous
  Country: US (occurrence: US)
  Receive Date: 20121016
  Receipt Date: 20131018
  Transmission Date: 20141212
  Serious: Yes (Hospitalization, Other)
  Sender: FDA-Public Use
  Company Number: US-PFIZER INC-2012254296

PATIENT
  Age: 42 Year
  Sex: Male
  Weight: 107.48 kg

DRUGS (9)
  1. LYRICA [Suspect]
     Indication: NEUROPATHY PERIPHERAL
     Dosage: 75 MG, 2X/DAY
     Route: 048
     Dates: start: 2011, end: 201205
  2. MORPHINE SULFATE [Suspect]
     Indication: PAIN
     Dosage: UNK
  3. ZANTAC [Concomitant]
     Dosage: UNK
  4. ONDANSETRON [Concomitant]
     Indication: BARRETT^S OESOPHAGUS
     Dosage: UNK
  5. METOPROLOL [Concomitant]
     Dosage: UNK
  6. OMEPRAZOLE [Concomitant]
     Dosage: UNK
  7. LISINOPRIL [Concomitant]
     Dosage: UNK
  8. PERCOCET [Concomitant]
     Dosage: UNK
  9. FLEXERIL [Concomitant]
     Dosage: UNK

REACTIONS (13)
  - Vomiting [Unknown]
  - Intervertebral disc disorder [Unknown]
  - Impaired self-care [Unknown]
  - Activities of daily living impaired [Unknown]
  - Feeling abnormal [Unknown]
  - Depression [Unknown]
  - Mood altered [Unknown]
  - Joint range of motion decreased [Unknown]
  - Gait disturbance [Unknown]
  - Agitation [Unknown]
  - Weight decreased [Unknown]
  - Liver function test abnormal [Unknown]
  - Drug ineffective [Unknown]
